FAERS Safety Report 25112295 (Version 1)
Quarter: 2025Q1

REPORT INFORMATION
  Report Type: Spontaneous
  Country: FR (occurrence: FR)
  Receive Date: 20250324
  Receipt Date: 20250324
  Transmission Date: 20250408
  Serious: Yes (Other)
  Sender: MYLAN
  Company Number: FR-TEVA-VS-3305937

PATIENT
  Sex: Male

DRUGS (4)
  1. DOCETAXEL [Suspect]
     Active Substance: DOCETAXEL
     Indication: Gastric cancer
     Dosage: 85 MILLIGRAM PER MILLILITRE, BIWEEKLY (AT THE POSOLOGY OF 85MG/ML)
  2. FLUOROURACIL [Suspect]
     Active Substance: FLUOROURACIL
     Indication: Gastric cancer
     Dosage: 85 MILLIGRAM PER MILLILITRE, BIWEEKLY (AT THE POSOLOGY OF 85MG/ML)
  3. OXALIPLATIN [Suspect]
     Active Substance: OXALIPLATIN
     Indication: Gastric cancer
     Dosage: 85 MILLIGRAM PER MILLILITRE, BIWEEKLY (TEVA, AT THE POSOLOGY OF 85MG/ML)
  4. LEUCOVORIN [Suspect]
     Active Substance: LEUCOVORIN\LEUCOVORIN CALCIUM
     Indication: Gastric cancer
     Dosage: 85 MILLIGRAM PER MILLILITRE, BIWEEKLY (AT THE POSOLOGY OF 85MG/ML)

REACTIONS (2)
  - Neuropathy peripheral [Not Recovered/Not Resolved]
  - Product use in unapproved indication [Unknown]
